FAERS Safety Report 5012295-4 (Version None)
Quarter: 2006Q2

REPORT INFORMATION
  Report Type: 
  Country: None (occurrence: None)
  Receive Date: 20060410
  Receipt Date: 20050321
  Transmission Date: 20061013
  Serious: Yes (Hospitalization)
  Sender: FDA-Public Use
  Company Number: 05P-163-0294864-00

PATIENT
  Age: 31 Year
  Sex: Female

DRUGS (3)
  1. DEPAKOTE [Suspect]
     Dosage: 3000 MG
  2. LAMOTRIGINE [Suspect]
     Indication: BIPOLAR DISORDER
     Dosage: ORAL
     Route: 048
     Dates: end: 19950101
  3. CLONAZEPAM [Concomitant]

REACTIONS (1)
  - PANCREATITIS [None]
